APPROVED DRUG PRODUCT: EC-NAPROSYN
Active Ingredient: NAPROXEN
Strength: 500MG
Dosage Form/Route: TABLET, DELAYED RELEASE;ORAL
Application: N020067 | Product #003 | TE Code: AB
Applicant: ATNAHS PHARMA US LTD
Approved: Oct 14, 1994 | RLD: Yes | RS: Yes | Type: RX